FAERS Safety Report 4367565-X (Version None)
Quarter: 2004Q2

REPORT INFORMATION
  Report Type: 
  Country: None (occurrence: None)
  Receive Date: 20040526
  Receipt Date: 20040517
  Transmission Date: 20050107
  Serious: Yes (Hospitalization, Other)
  Sender: FDA-Public Use
  Company Number: 2004033139

PATIENT
  Sex: Female

DRUGS (3)
  1. NEURONTIN [Suspect]
     Indication: NEURALGIA
     Dates: start: 20030201, end: 20030501
  2. ROFECOXIB [Concomitant]
  3. SIMVASTATIN [Concomitant]

REACTIONS (5)
  - BEDRIDDEN [None]
  - FULL BLOOD COUNT DECREASED [None]
  - HYPOTENSION [None]
  - MOBILITY DECREASED [None]
  - PNEUMONITIS [None]
